FAERS Safety Report 16321667 (Version 2)
Quarter: 2019Q2

REPORT INFORMATION
  Report Type: Spontaneous
  Country: FR (occurrence: FR)
  Receive Date: 20190516
  Receipt Date: 20190521
  Transmission Date: 20190711
  Serious: Yes (Congenital Anomaly, Other)
  Sender: FDA-Public Use
  Company Number: FR-JNJFOC-20190508855

PATIENT
  Sex: Male
  Weight: 3.24 kg

DRUGS (3)
  1. DEPAKINE [Suspect]
     Active Substance: VALPROATE SODIUM
     Indication: EPILEPSY
     Route: 064
     Dates: start: 20020103, end: 20021002
  2. TOPIRAMATE. [Suspect]
     Active Substance: TOPIRAMATE
     Indication: EPILEPSY
     Route: 064
     Dates: start: 20020103, end: 20021002
  3. SPECIAFOLDINE [Concomitant]
     Active Substance: FOLIC ACID
     Route: 064

REACTIONS (35)
  - Dysmorphism [Unknown]
  - Hypotonia [Unknown]
  - Inguinal hernia [Unknown]
  - Cardiomyopathy [Unknown]
  - Hypertelorism of orbit [Unknown]
  - Foetal exposure during pregnancy [Recovered/Resolved]
  - Language disorder [Unknown]
  - Musculoskeletal stiffness [Unknown]
  - Nasopharyngitis [Unknown]
  - Strabismus [Unknown]
  - Toe walking [Unknown]
  - Psychiatric symptom [Unknown]
  - Disturbance in attention [Unknown]
  - Myopia [Unknown]
  - Ear infection [Unknown]
  - Balance disorder [Unknown]
  - Hypertonia [Unknown]
  - Malocclusion [Unknown]
  - Memory impairment [Unknown]
  - Cough [Unknown]
  - Psychomotor skills impaired [Unknown]
  - Penile curvature [Unknown]
  - Cleft palate [Unknown]
  - Glossoptosis [Unknown]
  - Dysgraphia [Unknown]
  - Cardiac disorder [Unknown]
  - Dyspraxia [Unknown]
  - Enuresis [Unknown]
  - Bradycardia [Unknown]
  - Fatigue [Unknown]
  - Sensory processing disorder [Unknown]
  - Dysarthria [Unknown]
  - Gastrooesophageal reflux disease [Unknown]
  - Learning disorder [Unknown]
  - Attention deficit/hyperactivity disorder [Unknown]

NARRATIVE: CASE EVENT DATE: 200211
